FAERS Safety Report 9276201 (Version 1)
Quarter: 2013Q2

REPORT INFORMATION
  Report Type: Spontaneous
  Country: US (occurrence: US)
  Receive Date: 20130507
  Receipt Date: 20130507
  Transmission Date: 20140414
  Serious: No
  Sender: FDA-Public Use
  Company Number: US-009507513-1305USA002838

PATIENT
  Age: 5 Year
  Sex: Female
  Weight: 31.75 kg

DRUGS (2)
  1. CLARITIN CHEWABLE TABLETS [Suspect]
     Indication: COUGH
     Dosage: 5 MG, QD
     Route: 048
  2. CLARITIN CHEWABLE TABLETS [Suspect]
     Dosage: 25 MG, ONCE
     Route: 048
     Dates: start: 20130421

REACTIONS (4)
  - Rash macular [Not Recovered/Not Resolved]
  - Swelling face [Not Recovered/Not Resolved]
  - Accidental overdose [Unknown]
  - Off label use [Unknown]
